FAERS Safety Report 7550752-7 (Version None)
Quarter: 2011Q2

REPORT INFORMATION
  Report Type: 
  Country: None (occurrence: None)
  Receive Date: 20110616
  Receipt Date: 20110610
  Transmission Date: 20111010
  Serious: Yes (Hospitalization, Other)
  Sender: FDA-Public Use
  Company Number: PL-AMGEN-POLSP2011030044

PATIENT
  Sex: Female
  Weight: 67 kg

DRUGS (3)
  1. DOXOLEM [Concomitant]
     Indication: UTERINE CANCER
     Dosage: 50 MG/M2, UNK
     Dates: start: 20110531
  2. CYTOXAN [Concomitant]
     Indication: UTERINE CANCER
     Dosage: 600 MG/M2, UNK
  3. NEULASTA [Suspect]
     Indication: CHEMOTHERAPY
     Dosage: UNK UNK, ONE TIME DOSE
     Route: 058
     Dates: start: 20110601, end: 20110601

REACTIONS (3)
  - PHARYNGITIS [None]
  - STAPHYLOCOCCAL INFECTION [None]
  - FEBRILE NEUTROPENIA [None]
